FAERS Safety Report 8319035-1 (Version None)
Quarter: 2012Q2

REPORT INFORMATION
  Report Type: 
  Country: None (occurrence: None)
  Receive Date: 20120427
  Receipt Date: 20120419
  Transmission Date: 20120825
  Serious: Yes (Hospitalization)
  Sender: FDA-Public Use
  Company Number: US-ACTELION-A-US2010-34146

PATIENT

DRUGS (1)
  1. TRACLEER [Suspect]
     Indication: PULMONARY ARTERIAL HYPERTENSION
     Dosage: UNK
     Route: 048
     Dates: start: 20061130

REACTIONS (15)
  - INSOMNIA [None]
  - GASTROINTESTINAL DISORDER [None]
  - BLOOD PRESSURE INCREASED [None]
  - CHEST PAIN [None]
  - DYSPNOEA [None]
  - COUGH [None]
  - INFLUENZA [None]
  - NAUSEA [None]
  - DIZZINESS [None]
  - FEELING ABNORMAL [None]
  - STAPHYLOCOCCAL INFECTION [None]
  - HEART RATE IRREGULAR [None]
  - HEART RATE DECREASED [None]
  - TUBERCULOSIS [None]
  - PNEUMONIA [None]
